FAERS Safety Report 9256810 (Version 1)
Quarter: 2013Q2

REPORT INFORMATION
  Report Type: Spontaneous
  Country: US (occurrence: None)
  Receive Date: 20130423
  Receipt Date: 20130423
  Transmission Date: 20140414
  Serious: Yes (Life-Threatening)
  Sender: FDA-Public Use
  Company Number: None

PATIENT
  Age: 58 Year
  Sex: Female
  Weight: 68.04 kg

DRUGS (1)
  1. SUBOXONE [Suspect]
     Indication: PAIN
     Dosage: 8MG  3X PER DAY  SL
     Route: 060
     Dates: start: 20110615, end: 20130421

REACTIONS (3)
  - Drug withdrawal syndrome [None]
  - Fall [None]
  - Drug abuser [None]
